FAERS Safety Report 9955523 (Version 1)
Quarter: 2014Q1

REPORT INFORMATION
  Report Type: Report from Study
  Country: US (occurrence: US)
  Receive Date: 20140304
  Receipt Date: 20140304
  Transmission Date: 20141002
  Serious: No
  Sender: FDA-Public Use
  Company Number: US-ABBVIE-13P-163-1087027-00

PATIENT
  Age: 59 Year
  Sex: Female

DRUGS (13)
  1. HUMIRA [Suspect]
     Indication: PSORIASIS
     Dates: start: 20111223, end: 20111223
  2. HUMIRA [Suspect]
     Dates: start: 20111230, end: 20121117
  3. HUMIRA [Suspect]
     Dates: start: 20121117, end: 20121117
  4. HUMIRA [Suspect]
     Dates: start: 20121126, end: 20121126
  5. HUMIRA [Suspect]
  6. HYDROCHLOROTHIAZIDE [Concomitant]
     Indication: HYPERTENSION
  7. SIMVASTATIN [Concomitant]
     Indication: BLOOD CHOLESTEROL INCREASED
  8. ASA [Concomitant]
     Indication: PRODUCT USED FOR UNKNOWN INDICATION
  9. MULTIVITAMIN [Concomitant]
     Indication: PRODUCT USED FOR UNKNOWN INDICATION
  10. RED YEAST RICE [Concomitant]
     Indication: PRODUCT USED FOR UNKNOWN INDICATION
  11. FISH OIL [Concomitant]
     Indication: PRODUCT USED FOR UNKNOWN INDICATION
  12. LISINOPRIL [Concomitant]
     Indication: HYPERTENSION
  13. BENADRYL [Concomitant]
     Indication: SEASONAL ALLERGY
     Dosage: ONE DAILY

REACTIONS (3)
  - Skin plaque [Not Recovered/Not Resolved]
  - Skin plaque [Not Recovered/Not Resolved]
  - Drug ineffective [Not Recovered/Not Resolved]
